FAERS Safety Report 8017381 (Version 6)
Quarter: 2013Q1

REPORT INFORMATION
  Report Type: Report from Study
  Country: US (occurrence: US)
  Receive Date: 20110630
  Receipt Date: 20130327
  Transmission Date: 20140127
  Serious: Yes (Hospitalization)
  Sender: FDA-Public Use
  Company Number: US-UCBSA-035628

PATIENT
  Age: 24 Year
  Sex: Male
  Weight: 71.21 kg

DRUGS (13)
  1. CIMZIA [Suspect]
     Indication: CROHN^S DISEASE
     Route: 058
     Dates: start: 20110425, end: 20110609
  2. PENTASA [Concomitant]
     Indication: CROHN^S DISEASE
     Route: 048
     Dates: start: 20110105
  3. ENTOCORT [Concomitant]
     Indication: CROHN^S DISEASE
     Route: 048
     Dates: start: 20110106
  4. ACETAMINOPHEN [Concomitant]
     Indication: CROHN^S DISEASE
  5. CONCERTA [Concomitant]
     Indication: ATTENTION DEFICIT/HYPERACTIVITY DISORDER
     Route: 048
  6. GABAPENTIN [Concomitant]
     Indication: NEURALGIA
     Route: 048
     Dates: start: 201101
  7. DILAUDID [Concomitant]
     Indication: PAIN
     Dosage: 1-2 TABS Q6H PRN
  8. MESALAMINE [Concomitant]
     Indication: CROHN^S DISEASE
     Dates: start: 20110105
  9. BUDESONIDE [Concomitant]
     Indication: CROHN^S DISEASE
     Dates: start: 20110106
  10. FLAGYL [Concomitant]
     Indication: ABSCESS
     Dates: start: 20110607, end: 20110609
  11. FLAGYL [Concomitant]
     Indication: ABSCESS
     Dates: start: 20110104, end: 20110104
  12. LEVOFLOXIN [Concomitant]
     Indication: ABSCESS
     Dates: start: 20110607, end: 20110609
  13. LEVOFLOXIN [Concomitant]
     Indication: ABSCESS
     Dates: start: 20110104, end: 20110104

REACTIONS (1)
  - Abdominal abscess [Recovered/Resolved]
